FAERS Safety Report 4355948-3 (Version None)
Quarter: 2004Q2

REPORT INFORMATION
  Report Type: 
  Country: None (occurrence: None)
  Receive Date: 20040510
  Receipt Date: 20040412
  Transmission Date: 20050107
  Serious: Yes (Hospitalization, Other)
  Sender: FDA-Public Use
  Company Number: 001248

PATIENT
  Age: 42 Year
  Sex: Female
  Weight: 102 kg

DRUGS (4)
  1. MEDROXYPROGESTERONE ACETATE [Suspect]
     Indication: MENOPAUSE
     Dosage: 5.00 MG, QD, ORAL
     Route: 048
     Dates: start: 20031205, end: 20040104
  2. ESTRATEST [Suspect]
     Dates: start: 20031205, end: 20040104
  3. PREVACID [Concomitant]
  4. ADDERALL 10 [Concomitant]

REACTIONS (3)
  - GALLBLADDER DISORDER [None]
  - PULMONARY EMBOLISM [None]
  - PULMONARY FUNCTION TEST DECREASED [None]
